FAERS Safety Report 4907396-2 (Version None)
Quarter: 2006Q1

REPORT INFORMATION
  Report Type: 
  Country: None (occurrence: None)
  Receive Date: 20060208
  Receipt Date: 20060208
  Transmission Date: 20060701
  Serious: No
  Sender: FDA-Public Use
  Company Number: None

PATIENT
  Age: 69 Year
  Sex: Male
  Weight: 80.5 kg

DRUGS (12)
  1. ENOXAPARIN SODIUM [Suspect]
     Indication: ANGINA UNSTABLE
     Dosage: 80 MG BID SC
     Route: 058
     Dates: start: 20051212
  2. ALOH/MGOH/SIMTH XTRA STRENGTH LIQUID [Concomitant]
  3. ASPIRIN [Concomitant]
  4. CALCIUM CARBONATE / MAGNESIUM HYDROXIDE [Concomitant]
  5. CLOPIDOGREL BISULFATE [Concomitant]
  6. LEVOTHYROXINE SODIUM [Concomitant]
  7. LISINOPRIL [Concomitant]
  8. NITROGLYCERIN [Concomitant]
  9. PANTOPRAZOLE [Concomitant]
  10. RANITIDINE HCL [Concomitant]
  11. SIMVASTATIN [Concomitant]
  12. SODIUM CHLORIDE [Concomitant]

REACTIONS (1)
  - EPISTAXIS [None]
